FAERS Safety Report 20514671 (Version 1)
Quarter: 2022Q1

REPORT INFORMATION
  Report Type: Spontaneous
  Country: GB (occurrence: GB)
  Receive Date: 20220224
  Receipt Date: 20220224
  Transmission Date: 20220424
  Serious: Yes (Other)
  Sender: FDA-Public Use
  Company Number: GB-MHRA-ADR 26602368

PATIENT
  Sex: Male
  Weight: 87 kg

DRUGS (2)
  1. BIMATOPROST\TIMOLOL [Suspect]
     Active Substance: BIMATOPROST\TIMOLOL
     Indication: Product used for unknown indication
     Dosage: 0.3MG/ML+5MG/ML 0.4ML UNIT IN MORNING.; ;
     Dates: start: 20220204, end: 20220207
  2. ATORVASTATIN [Concomitant]
     Active Substance: ATORVASTATIN

REACTIONS (3)
  - Vitreous floaters [Not Recovered/Not Resolved]
  - Visual impairment [Not Recovered/Not Resolved]
  - Intraocular pressure increased [Unknown]

NARRATIVE: CASE EVENT DATE: 20220204
